FAERS Safety Report 9394746 (Version 1)
Quarter: 2013Q3

REPORT INFORMATION
  Report Type: Spontaneous
  Country: US (occurrence: US)
  Receive Date: 20130711
  Receipt Date: 20130711
  Transmission Date: 20140515
  Serious: Yes (Other)
  Sender: FDA-Public Use
  Company Number: US-JNJFOC-20130702614

PATIENT
  Age: 32 Year
  Sex: Female

DRUGS (3)
  1. REMICADE [Suspect]
     Indication: ARTHRITIS
     Route: 042
     Dates: start: 20130320
  2. REMICADE [Suspect]
     Indication: ARTHRITIS
     Route: 042
     Dates: start: 201105, end: 201109
  3. METHOTREXATE [Suspect]
     Indication: ARTHRITIS
     Route: 065
     Dates: start: 201302

REACTIONS (1)
  - Pancreatitis [Unknown]
